FAERS Safety Report 5015139-X (Version None)
Quarter: 2006Q2

REPORT INFORMATION
  Report Type: 
  Country: None (occurrence: None)
  Receive Date: 20060530
  Receipt Date: 20060515
  Transmission Date: 20061013
  Serious: Yes (Other)
  Sender: FDA-Public Use
  Company Number: 230001L06DEU

PATIENT
  Age: 34 Year
  Sex: Female

DRUGS (1)
  1. INTERFERON BETA [Suspect]
     Indication: MULTIPLE SCLEROSIS

REACTIONS (3)
  - CEREBROVASCULAR ACCIDENT [None]
  - NERVOUS SYSTEM DISORDER [None]
  - VASCULITIS [None]
